FAERS Safety Report 6018977-X (Version None)
Quarter: 2008Q4

REPORT INFORMATION
  Report Type: 
  Country: None (occurrence: None)
  Receive Date: 20081224
  Receipt Date: 20081215
  Transmission Date: 20090506
  Serious: No
  Sender: FDA-Public Use
  Company Number: US-JNJFOC-20081204513

PATIENT
  Sex: Female
  Weight: 74.84 kg

DRUGS (1)
  1. DURAGESIC-100 [Suspect]
     Indication: COMPLEX REGIONAL PAIN SYNDROME
     Dosage: 50UG/HR EVERY 48-72 HOURS
     Route: 062
     Dates: start: 20081201

REACTIONS (1)
  - DRUG PRESCRIBING ERROR [None]
